FAERS Safety Report 9759832 (Version 3)
Quarter: 2014Q1

REPORT INFORMATION
  Report Type: Spontaneous
  Country: JP (occurrence: JP)
  Receive Date: 20131216
  Receipt Date: 20140204
  Transmission Date: 20141002
  Serious: Yes (Other)
  Sender: FDA-Public Use
  Company Number: JP-PURDUE-DEU-2013-0013024

PATIENT
  Age: 70 Year
  Sex: Male

DRUGS (3)
  1. OXYCODONE HCL PR TABLET 40 MG [Suspect]
     Indication: CANCER PAIN
     Dosage: 40 MG, DAILY
     Dates: start: 20131011
  2. OXYCODONE HCL PR TABLET 40 MG [Suspect]
     Dosage: 40 MG, DAILY
     Route: 048
     Dates: end: 20131002
  3. OXYFAST [Suspect]
     Indication: CANCER PAIN
     Dosage: UNK
     Dates: start: 20131003, end: 20131010

REACTIONS (2)
  - Delirium [Recovering/Resolving]
  - Haematemesis [Recovered/Resolved]
